FAERS Safety Report 7383625-3 (Version None)
Quarter: 2011Q1

REPORT INFORMATION
  Report Type: 
  Country: None (occurrence: None)
  Receive Date: 20110330
  Receipt Date: 20110325
  Transmission Date: 20110831
  Serious: Yes (Other)
  Sender: FDA-Public Use
  Company Number: TW-ROCHE-676278

PATIENT
  Sex: Female

DRUGS (6)
  1. TRASTUZUMAB [Suspect]
     Dosage: AFTER 4 MG/KG LOADING DOSE. INTERRUPTED
     Route: 042
     Dates: start: 20090929, end: 20091117
  2. PACLITAXEL [Suspect]
     Indication: BREAST CANCER
     Dosage: INTERRUPTED
     Route: 042
     Dates: start: 20090929, end: 20091117
  3. PACLITAXEL [Suspect]
     Dosage: DOSE REDUCED TO 64 MG/ME2 EVERY SEVEN DAYS
     Route: 042
     Dates: start: 20091201
  4. TRASTUZUMAB [Suspect]
     Route: 042
     Dates: start: 20091201
  5. LAPATINIB [Suspect]
     Indication: BREAST CANCER
     Dosage: PERMANENTLY WITHDRAWN
     Route: 048
     Dates: start: 20090929, end: 20091116
  6. TRASTUZUMAB [Suspect]
     Indication: BREAST CANCER
     Dosage: LOADING DOSE
     Route: 042

REACTIONS (2)
  - ASPARTATE AMINOTRANSFERASE INCREASED [None]
  - ALANINE AMINOTRANSFERASE INCREASED [None]
